FAERS Safety Report 8597675-2 (Version None)
Quarter: 2012Q3

REPORT INFORMATION
  Report Type: 
  Country: None (occurrence: None)
  Receive Date: 20120816
  Receipt Date: 20120810
  Transmission Date: 20120928
  Serious: Yes (Hospitalization)
  Sender: FDA-Public Use
  Company Number: NL-PFIZER INC-2012197434

PATIENT
  Sex: Male
  Weight: 79.8 kg

DRUGS (6)
  1. GENOTROPIN [Suspect]
     Dosage: 0.4 MG, 7/WK
     Route: 058
     Dates: start: 20060331
  2. ANDROGEL [Concomitant]
     Indication: HYPOGONADISM MALE
  3. LEVOTHYROXINE SODIUM [Concomitant]
     Indication: BLOOD THYROID STIMULATING HORMONE DECREASED
     Dosage: UNK
     Dates: start: 20060914
  4. ANDROGEL [Concomitant]
     Indication: BLOOD FOLLICLE STIMULATING HORMONE DECREASED
  5. LEVOTHYROXINE SODIUM [Concomitant]
     Indication: PRIMARY HYPOTHYROIDISM
  6. ANDROGEL [Concomitant]
     Indication: BLOOD LUTEINISING HORMONE DECREASED
     Dosage: UNK
     Dates: start: 20051010

REACTIONS (1)
  - BLADDER DISORDER [None]
